FAERS Safety Report 5761680-1 (Version None)
Quarter: 2008Q2

REPORT INFORMATION
  Report Type: 
  Country: None (occurrence: None)
  Receive Date: 20080606
  Receipt Date: 20080523
  Transmission Date: 20081010
  Serious: Yes (Death)
  Sender: FDA-Public Use
  Company Number: JP-GENENTECH-254295

PATIENT
  Sex: Male

DRUGS (6)
  1. BEVACIZUMAB [Suspect]
     Indication: COLON CANCER METASTATIC
     Dosage: 5 MG/KG, Q2W
     Route: 041
     Dates: start: 20071022
  2. OXALIPLATIN [Concomitant]
     Indication: COLON CANCER METASTATIC
     Dosage: UNK, UNK
     Route: 041
     Dates: start: 20071003, end: 20071119
  3. LEUCOVORIN CALCIUM [Concomitant]
     Indication: COLON CANCER METASTATIC
     Dosage: UNK, UNK
     Route: 041
     Dates: start: 20071003, end: 20071218
  4. FLUOROURACIL [Concomitant]
     Indication: COLON CANCER METASTATIC
     Dosage: UNK, UNK
     Route: 042
     Dates: start: 20071003, end: 20071218
  5. IRINOTECAN HCL [Concomitant]
     Indication: DRUG USE FOR UNKNOWN INDICATION
     Dosage: UNK, UNK
     Dates: start: 20071203, end: 20071217
  6. NATEGLINIDE [Concomitant]
     Indication: DRUG USE FOR UNKNOWN INDICATION
     Dosage: UNK, UNK
     Dates: start: 20070929, end: 20071220

REACTIONS (4)
  - ACUTE RESPIRATORY DISTRESS SYNDROME [None]
  - JUGULAR VEIN THROMBOSIS [None]
  - PELVIC VENOUS THROMBOSIS [None]
  - STOMATITIS [None]
